FAERS Safety Report 19150282 (Version 1)
Quarter: 2021Q2

REPORT INFORMATION
  Report Type: Spontaneous
  Country: BR (occurrence: BR)
  Receive Date: 20210418
  Receipt Date: 20210418
  Transmission Date: 20210717
  Serious: No
  Sender: FDA-Public Use
  Company Number: BR-LUPIN PHARMACEUTICALS INC.-2021-04700

PATIENT
  Age: 22 Year
  Sex: Female

DRUGS (4)
  1. 5?FLUOROURACIL [FLUOROURACIL] [Suspect]
     Active Substance: FLUOROURACIL
     Indication: KELOID SCAR
  2. TRIAMCINOLONE [Suspect]
     Active Substance: TRIAMCINOLONE
     Indication: HYPERTROPHIC SCAR
     Dosage: 10 MILLIGRAM; INJECTION
     Route: 026
  3. TRIAMCINOLONE [Suspect]
     Active Substance: TRIAMCINOLONE
     Indication: KELOID SCAR
  4. 5?FLUOROURACIL [FLUOROURACIL] [Suspect]
     Active Substance: FLUOROURACIL
     Indication: HYPERTROPHIC SCAR
     Dosage: 25 MILLIGRAM; A COMBINATION OF TRIAMCINOLONE AND FLUOROUACIL IN A 1:1 SOLUTION (TRIAMCINOLONE 20 MG/
     Route: 026

REACTIONS (1)
  - Injection site pain [Unknown]
